FAERS Safety Report 6265828-4 (Version None)
Quarter: 2009Q3

REPORT INFORMATION
  Report Type: 
  Country: None (occurrence: None)
  Receive Date: 20090713
  Receipt Date: 20090705
  Transmission Date: 20100115
  Serious: Yes (Other)
  Sender: FDA-Public Use
  Company Number: B0579898A

PATIENT
  Age: 50 Year
  Sex: Male

DRUGS (3)
  1. PAXIL [Suspect]
     Indication: DRUG USE FOR UNKNOWN INDICATION
     Dosage: 10MG PER DAY
     Route: 048
     Dates: start: 20080101
  2. ARTANE [Concomitant]
     Route: 048
  3. LULLAN [Concomitant]
     Route: 048

REACTIONS (1)
  - INFERTILITY MALE [None]
